FAERS Safety Report 24457625 (Version 1)
Quarter: 2024Q4

REPORT INFORMATION
  Report Type: Report from Study
  Country: US (occurrence: US)
  Receive Date: 20241018
  Receipt Date: 20241018
  Transmission Date: 20250115
  Serious: No
  Sender: ROCHE
  Company Number: US-ROCHE-3450660

PATIENT

DRUGS (2)
  1. ACTIVASE [Suspect]
     Active Substance: ALTEPLASE
     Indication: Frostbite
     Dosage: 1 MG/HR
     Route: 013
  2. TNKASE [Suspect]
     Active Substance: TENECTEPLASE
     Indication: Frostbite
     Dosage: 0.15 TO 0.5 MG/HR WITH
     Route: 013

REACTIONS (2)
  - Off label use [Unknown]
  - No adverse event [Unknown]
